FAERS Safety Report 24173781 (Version 1)
Quarter: 2024Q3

REPORT INFORMATION
  Report Type: Spontaneous
  Country: US (occurrence: US)
  Receive Date: 20240805
  Receipt Date: 20240805
  Transmission Date: 20241016
  Serious: Yes (Other)
  Sender: LEO PHARM
  Company Number: US-LEO Pharma-372467

PATIENT
  Age: 62 Year
  Sex: Male
  Weight: 104 kg

DRUGS (1)
  1. ADBRY [Suspect]
     Active Substance: TRALOKINUMAB-LDRM
     Indication: Dermatitis atopic
     Dosage: THERAPY REPORTED AS ONGOING?EXPIRATION DATE ASKED BUT UNKNOWN
     Route: 058
     Dates: start: 20230614

REACTIONS (1)
  - Nephrolithiasis [Unknown]
